FAERS Safety Report 9384242 (Version 1)
Quarter: 2013Q3

REPORT INFORMATION
  Report Type: Spontaneous
  Country: US (occurrence: None)
  Receive Date: 20130702
  Receipt Date: 20130702
  Transmission Date: 20140515
  Serious: Yes (Life-Threatening)
  Sender: FDA-Public Use
  Company Number: None

PATIENT
  Age: 77 Year
  Sex: Male
  Weight: 82 kg

DRUGS (3)
  1. RIVAROXABAN [Suspect]
  2. ENOXAPARIN [Concomitant]
  3. ASPIRIN [Concomitant]

REACTIONS (1)
  - Haemorrhage [None]
